FAERS Safety Report 11839074 (Version 1)
Quarter: 2015Q4

REPORT INFORMATION
  Report Type: Spontaneous
  Country: US (occurrence: US)
  Receive Date: 20151216
  Receipt Date: 20151216
  Transmission Date: 20160305
  Serious: Yes (Disabling, Other)
  Sender: FDA-Public Use
  Company Number: US-ZYDUS-009707

PATIENT
  Age: 28 Year
  Sex: Female

DRUGS (2)
  1. LEVOFLOXACIN. [Suspect]
     Active Substance: LEVOFLOXACIN
     Indication: SINUSITIS
     Dosage: 7 DAY COURSE OF 750 MG/DAY, FOLLOWED IN SEVERAL WEEKS BY 10-DAY COURSE OF 750 MG/DAY
     Route: 065
  2. HYDROCODONE/HYDROCODONE BITARTRATE/HYDROCODONE HYDROCHLORIDE/HYDROCODONE POLISTIREX [Concomitant]
     Indication: PAIN

REACTIONS (18)
  - Arthralgia [Unknown]
  - Peripheral coldness [Unknown]
  - Dry eye [Unknown]
  - Myalgia [Unknown]
  - Gastrointestinal disorder [Unknown]
  - Muscle spasms [Unknown]
  - Dyspnoea [Unknown]
  - Tendon disorder [Unknown]
  - Tendon pain [Unknown]
  - Visual impairment [Unknown]
  - Fatigue [Unknown]
  - Blood glucose abnormal [Unknown]
  - Neuropathy peripheral [Unknown]
  - Muscular weakness [Unknown]
  - Nervous system disorder [Unknown]
  - Muscle atrophy [Unknown]
  - Muscle contractions involuntary [Unknown]
  - Cardiovascular symptom [Unknown]
